FAERS Safety Report 4701427-0 (Version None)
Quarter: 2005Q2

REPORT INFORMATION
  Report Type: 
  Country: None (occurrence: None)
  Receive Date: 20050628
  Receipt Date: 20050531
  Transmission Date: 20051028
  Serious: Yes (Life-Threatening, Hospitalization)
  Sender: FDA-Public Use
  Company Number: FR-ROCHE-406334

PATIENT
  Age: 57 Year
  Sex: Male
  Weight: 83 kg

DRUGS (9)
  1. CAPECITABINE [Suspect]
     Dosage: TWO WEEKS TREATMENT FOLLOWED BY ONE WEEK REST.
     Route: 048
     Dates: start: 20050119
  2. BLINDED BEVACIZUMAB [Suspect]
     Route: 042
     Dates: start: 20050119
  3. OXALIPLATIN [Suspect]
     Route: 042
     Dates: start: 20050119
  4. TETRAZEPAM [Concomitant]
     Dates: start: 20050411, end: 20050613
  5. MORPHINE SULFATE [Concomitant]
     Dates: start: 20050420
  6. DI-ANTALVIC [Concomitant]
     Dosage: P.R.N.
     Dates: start: 20050209
  7. FENTANYL [Concomitant]
     Dates: start: 20040615
  8. OMEPRAZOLE [Concomitant]
     Dates: start: 20050615
  9. KETOPROFEN [Concomitant]
     Dates: start: 20050427, end: 20050607

REACTIONS (2)
  - HAEMODIALYSIS [None]
  - RENAL FAILURE ACUTE [None]
